FAERS Safety Report 7681751-2 (Version None)
Quarter: 2011Q3

REPORT INFORMATION
  Report Type: 
  Country: None (occurrence: None)
  Receive Date: 20110812
  Receipt Date: 20110804
  Transmission Date: 20111222
  Serious: Yes (Hospitalization)
  Sender: FDA-Public Use
  Company Number: PHHY2011KR71143

PATIENT
  Age: 77 Year
  Sex: Male
  Weight: 60 kg

DRUGS (5)
  1. SEVOFLURANE [Concomitant]
     Dosage: 6 %, UNK
  2. LIDOCAINE [Concomitant]
     Dosage: 40 MG, UNK
  3. VECURONIUM BROMIDE [Concomitant]
     Dosage: 10 MG, UNK
  4. PROPOFOL [Concomitant]
     Dosage: 120 MG, UNK
  5. CEFUROXIME SODIUM [Suspect]
     Indication: ANTIBIOTIC PROPHYLAXIS
     Dosage: 1.5 G, UNK

REACTIONS (11)
  - CARDIAC ARREST [None]
  - INSPIRATORY CAPACITY ABNORMAL [None]
  - RESPIRATORY RATE DECREASED [None]
  - BRONCHOSPASM [None]
  - END-TIDAL CO2 INCREASED [None]
  - HEART RATE DECREASED [None]
  - PNEUMOTHORAX [None]
  - OXYGEN SATURATION DECREASED [None]
  - BLOOD PRESSURE DECREASED [None]
  - ANAPHYLACTIC REACTION [None]
  - ATELECTASIS [None]
